FAERS Safety Report 7312245-1 (Version None)
Quarter: 2011Q1

REPORT INFORMATION
  Report Type: 
  Country: None (occurrence: None)
  Receive Date: 20110224
  Receipt Date: 20110217
  Transmission Date: 20110831
  Serious: Yes (Other)
  Sender: FDA-Public Use
  Company Number: A0914196A

PATIENT
  Age: 51 Year
  Sex: Female

DRUGS (9)
  1. NORVASC [Concomitant]
  2. DILAUDID [Concomitant]
  3. ARMOUR [Concomitant]
  4. LEVOXYL [Concomitant]
  5. OMEPRAZOLE [Concomitant]
  6. WELLBUTRIN [Concomitant]
  7. NORCO [Concomitant]
  8. COREG CR [Suspect]
     Dosage: 40MG PER DAY
     Route: 048
     Dates: start: 20080601, end: 20110101
  9. CARDIZEM [Concomitant]

REACTIONS (11)
  - EJECTION FRACTION DECREASED [None]
  - BLOOD ALKALINE PHOSPHATASE INCREASED [None]
  - ANAEMIA [None]
  - NAUSEA [None]
  - ATRIAL FIBRILLATION [None]
  - OEDEMA PERIPHERAL [None]
  - MALAISE [None]
  - SINUS CONGESTION [None]
  - GAMMA-GLUTAMYLTRANSFERASE INCREASED [None]
  - VOMITING [None]
  - CHROMATURIA [None]
